FAERS Safety Report 17710574 (Version 1)
Quarter: 2020Q2

REPORT INFORMATION
  Report Type: Spontaneous
  Country: US (occurrence: US)
  Receive Date: 20200424
  Receipt Date: 20200424
  Transmission Date: 20200714
  Serious: Yes (Hospitalization)
  Sender: FDA-Public Use
  Company Number: None

PATIENT
  Sex: Female

DRUGS (2)
  1. OCTREOTIDE. [Concomitant]
     Active Substance: OCTREOTIDE
  2. STELARA [Suspect]
     Active Substance: USTEKINUMAB
     Indication: BLOOD OESTROGEN ABNORMAL
     Dosage: ?          OTHER DOSE:90MG/1ML;?
     Route: 058
     Dates: start: 201912

REACTIONS (1)
  - Sepsis [None]
